FAERS Safety Report 7368155-7 (Version None)
Quarter: 2011Q1

REPORT INFORMATION
  Report Type: 
  Country: None (occurrence: None)
  Receive Date: 20110311
  Receipt Date: 20110228
  Transmission Date: 20110831
  Serious: Yes (Death, Hospitalization)
  Sender: FDA-Public Use
  Company Number: 2011CP000033

PATIENT
  Age: 92 Year
  Sex: Male

DRUGS (1)
  1. PERFALGAN (PARACETAMOL) [Suspect]
     Indication: PROCEDURAL PAIN
     Dosage: 1 GM, ONCE, IV
     Route: 042
     Dates: start: 20100721, end: 20100721

REACTIONS (5)
  - ACUTE PULMONARY OEDEMA [None]
  - RENAL IMPAIRMENT [None]
  - ENTEROCOCCAL INFECTION [None]
  - STEVENS-JOHNSON SYNDROME [None]
  - ACINETOBACTER BACTERAEMIA [None]
